FAERS Safety Report 9486674 (Version 1)
Quarter: 2013Q3

REPORT INFORMATION
  Report Type: Spontaneous
  Country: US (occurrence: None)
  Receive Date: 20130827
  Receipt Date: 20130827
  Transmission Date: 20140515
  Serious: Yes (Disabling, Other)
  Sender: FDA-Public Use
  Company Number: None

PATIENT
  Age: 48 None
  Sex: Female
  Weight: 90.72 kg

DRUGS (21)
  1. SIMVASTATIN [Suspect]
     Indication: BLOOD CHOLESTEROL INCREASED
     Route: 048
  2. OXYCONTIN [Concomitant]
  3. POTASSIUM CHLORIDE [Concomitant]
  4. RANITIDINE [Concomitant]
  5. SERTALINE [Concomitant]
  6. SITAGLIPTIN [Concomitant]
  7. WARFARIN [Concomitant]
  8. ALBUTEROL INHALER [Concomitant]
  9. CALCIUM-VITAMIN [Concomitant]
  10. CARISOPRODOL [Concomitant]
  11. DEPAKOTE [Concomitant]
  12. FREE STYLE LANCETS MISC [Concomitant]
  13. FREE STYLE LIT DEVI [Concomitant]
  14. GLUCOSE BLOOD(FREESTYLE LITE TEST) [Concomitant]
  15. HYDROCHLOROTHIAZIDE [Concomitant]
  16. LIDOCAINE [Concomitant]
  17. LISINOPRIL [Concomitant]
  18. LORAZEPAM [Concomitant]
  19. METFORMIN [Concomitant]
  20. OLAPATIDINE [Concomitant]
  21. OXYCODONE [Suspect]

REACTIONS (8)
  - Muscle spasms [None]
  - Muscle spasms [None]
  - Urinary tract infection [None]
  - Pain [None]
  - Malaise [None]
  - Impaired driving ability [None]
  - Dry eye [None]
  - Economic problem [None]
